FAERS Safety Report 10688120 (Version 1)
Quarter: 2015Q1

REPORT INFORMATION
  Report Type: Report from Study
  Country: CA (occurrence: CA)
  Receive Date: 20150102
  Receipt Date: 20150102
  Transmission Date: 20150720
  Serious: Yes (Death, Other)
  Sender: FDA-Public Use
  Company Number: CA-BRISTOL-MYERS SQUIBB COMPANY-BMS-2014-004356

PATIENT
  Sex: Male

DRUGS (19)
  1. EUROFOLIC [Concomitant]
  2. NIFEDIPINE. [Concomitant]
     Active Substance: NIFEDIPINE
  3. GRAVOL [Concomitant]
     Active Substance: DIMENHYDRINATE
  4. OXYCONTIN [Concomitant]
     Active Substance: OXYCODONE HYDROCHLORIDE
  5. AVAPRO [Concomitant]
     Active Substance: IRBESARTAN
  6. METHOTREXATE [Concomitant]
     Active Substance: METHOTREXATE
  7. COLACE [Concomitant]
     Active Substance: DOCUSATE SODIUM
  8. HYDROXYCHLOROQUINE [Concomitant]
     Active Substance: HYDROXYCHLOROQUINE
  9. OXYCODONE [Concomitant]
     Active Substance: OXYCODONE
  10. ABATACEPT [Suspect]
     Active Substance: ABATACEPT
     Indication: RHEUMATOID ARTHRITIS
     Dosage: 125 MG, QWK
     Route: 058
     Dates: start: 20130621, end: 201412
  11. CALCIUM + VITAMIN D                /01483701/ [Concomitant]
     Active Substance: CALCIUM\VITAMIN D
  12. ACETAMINOPHEN. [Concomitant]
     Active Substance: ACETAMINOPHEN
  13. TEMAZEPAM. [Concomitant]
     Active Substance: TEMAZEPAM
  14. SYNTHROID [Concomitant]
     Active Substance: LEVOTHYROXINE SODIUM
  15. MIRAPEX [Concomitant]
     Active Substance: PRAMIPEXOLE DIHYDROCHLORIDE
  16. RISEDRONATE [Concomitant]
     Active Substance: RISEDRONATE SODIUM
  17. PLAQUENIL [Concomitant]
     Active Substance: HYDROXYCHLOROQUINE SULFATE
  18. PANTOPRAZOLE [Concomitant]
     Active Substance: PANTOPRAZOLE SODIUM
  19. CARDURA [Concomitant]
     Active Substance: DOXAZOSIN MESYLATE

REACTIONS (2)
  - Rib fracture [Unknown]
  - Fall [Fatal]

NARRATIVE: CASE EVENT DATE: 2014
